FAERS Safety Report 19558875 (Version 1)
Quarter: 2021Q3

REPORT INFORMATION
  Report Type: Spontaneous
  Country: US (occurrence: US)
  Receive Date: 20210714
  Receipt Date: 20210714
  Transmission Date: 20211014
  Serious: No
  Sender: FDA-Public Use
  Company Number: US-SK LIFE SCIENCE, INC-SKPVG-2020-000617

PATIENT

DRUGS (2)
  1. KEPPRA [Concomitant]
     Active Substance: LEVETIRACETAM
     Indication: PRODUCT USED FOR UNKNOWN INDICATION
     Dosage: 1000 UNK, QD
     Route: 065
  2. XCOPRI [Suspect]
     Active Substance: CENOBAMATE
     Indication: SEIZURE
     Dosage: 100 MILLIGRAM, QD, 1 TABLET
     Route: 048
     Dates: start: 202010

REACTIONS (3)
  - Dyskinesia [Unknown]
  - Product dose omission issue [Unknown]
  - Expired product administered [Unknown]

NARRATIVE: CASE EVENT DATE: 2020
